FAERS Safety Report 9852964 (Version 1)
Quarter: 2014Q1

REPORT INFORMATION
  Report Type: Spontaneous
  Country: IT (occurrence: IT)
  Receive Date: 20140129
  Receipt Date: 20140129
  Transmission Date: 20141002
  Serious: Yes (Other)
  Sender: FDA-Public Use
  Company Number: IT-ACTAVIS-2014-00897

PATIENT
  Age: 79 Year
  Sex: 0
  Weight: 80 kg

DRUGS (1)
  1. GABAPENTIN (UNKNOWN) [Suspect]
     Indication: SCIATICA
     Dosage: 300 MG, DAILY
     Route: 048
     Dates: start: 20130630, end: 20130701

REACTIONS (1)
  - Angioedema [Recovered/Resolved]
